FAERS Safety Report 6401395-X (Version None)
Quarter: 2009Q4

REPORT INFORMATION
  Report Type: 
  Country: None (occurrence: None)
  Receive Date: 20091015
  Receipt Date: 20070410
  Transmission Date: 20100525
  Serious: Yes (Disabling)
  Sender: FDA-Public Use
  Company Number: US-ASTRAZENECA-2006UW08474

PATIENT
  Sex: Female
  Weight: 102.5 kg

DRUGS (9)
  1. SEROQUEL [Suspect]
     Indication: PARANOIA
     Route: 048
     Dates: start: 20010901
  2. GLUCOPHAGE [Concomitant]
     Dates: start: 20050101
  3. ADIPEX [Concomitant]
     Dates: start: 20050101
  4. LIPITOR [Concomitant]
     Dates: start: 20050101
  5. ZETIA [Concomitant]
     Dates: start: 20050101
  6. EFFEXOR [Concomitant]
     Dates: start: 20030101
  7. CELEXA [Concomitant]
     Dates: start: 20020101
  8. KLONOPIN [Concomitant]
     Indication: ANXIETY
     Dosage: 0.25 MG A.M. AND 0.5 MG AT NIGHT
     Dates: start: 20010101
  9. ZOLOFT [Concomitant]
     Dates: start: 20010101

REACTIONS (1)
  - ILL-DEFINED DISORDER [None]
